FAERS Safety Report 9400176 (Version 2)
Quarter: 2013Q3

REPORT INFORMATION
  Report Type: Spontaneous
  Country: JP (occurrence: JP)
  Receive Date: 20130715
  Receipt Date: 20130724
  Transmission Date: 20140515
  Serious: Yes (Death, Other)
  Sender: FDA-Public Use
  Company Number: JP-PFIZER INC-2013203300

PATIENT
  Age: 4 Year
  Sex: Female

DRUGS (2)
  1. ATENOLOL [Suspect]
     Indication: LONG QT SYNDROME
     Dosage: 25 MG, DAILY
     Route: 048
  2. MEXILETINE [Suspect]
     Indication: LONG QT SYNDROME
     Dosage: UNK

REACTIONS (3)
  - Bradycardia [Fatal]
  - Cardiac failure [Fatal]
  - Metabolic acidosis [Unknown]
